FAERS Safety Report 10384884 (Version 1)
Quarter: 2014Q3

REPORT INFORMATION
  Report Type: Spontaneous
  Country: DE (occurrence: DE)
  Receive Date: 20140814
  Receipt Date: 20140814
  Transmission Date: 20150326
  Serious: Yes (Other)
  Sender: FDA-Public Use
  Company Number: DE-B.I. PHARMACEUTICALS,INC./RIDGEFIELD-2014-BI-36690DE

PATIENT
  Age: 73 Year
  Sex: Male
  Weight: 74 kg

DRUGS (1)
  1. MOVALIS [Suspect]
     Active Substance: MELOXICAM
     Indication: BACK PAIN
     Dosage: 1.5 ANZ
     Route: 065
     Dates: start: 20140804

REACTIONS (1)
  - Blood pressure increased [Not Recovered/Not Resolved]

NARRATIVE: CASE EVENT DATE: 20140804
